FAERS Safety Report 24467920 (Version 1)
Quarter: 2024Q4

REPORT INFORMATION
  Report Type: Spontaneous
  Country: US (occurrence: US)
  Receive Date: 20241018
  Receipt Date: 20241018
  Transmission Date: 20250115
  Serious: No
  Sender: Phathom Pharmaceuticals
  Company Number: US-PHATHOM PHARMACEUTICALS INC.-2024PHT00730

PATIENT
  Age: 62 Year
  Sex: Female
  Weight: 72.562 kg

DRUGS (7)
  1. VOQUEZNA [Suspect]
     Active Substance: VONOPRAZAN FUMARATE
     Indication: Diaphragmatic hernia
     Dosage: 20 MG, 1X/DAY
     Route: 048
     Dates: start: 202408, end: 202408
  2. VOQUEZNA [Suspect]
     Active Substance: VONOPRAZAN FUMARATE
     Indication: Diaphragmatic hernia
     Dosage: 10 MG, 1X/DAY
     Route: 048
     Dates: start: 202408, end: 202408
  3. FAMOTIDINE [Concomitant]
     Active Substance: FAMOTIDINE
  4. TORADOL [Concomitant]
     Active Substance: KETOROLAC TROMETHAMINE
  5. ELETRIPTAN [Concomitant]
     Active Substance: ELETRIPTAN
  6. METHOCARBAMOL [Concomitant]
     Active Substance: METHOCARBAMOL
  7. VITAMINS [Concomitant]
     Active Substance: VITAMINS

REACTIONS (6)
  - Alopecia [Recovering/Resolving]
  - Head discomfort [Recovered/Resolved]
  - Diarrhoea [Recovered/Resolved]
  - Dizziness [Recovered/Resolved]
  - Abdominal pain upper [Recovered/Resolved]
  - Off label use [Recovered/Resolved]

NARRATIVE: CASE EVENT DATE: 20240801
